FAERS Safety Report 11181822 (Version 2)
Quarter: 2015Q2

REPORT INFORMATION
  Report Type: Spontaneous
  Country: US (occurrence: US)
  Receive Date: 20150611
  Receipt Date: 20150616
  Transmission Date: 20150821
  Serious: Yes (Other)
  Sender: FDA-Public Use
  Company Number: US-ASTELLAS-2015US008401

PATIENT
  Age: 64 Year
  Sex: Male

DRUGS (1)
  1. XTANDI [Suspect]
     Active Substance: ENZALUTAMIDE
     Indication: PROSTATE CANCER
     Route: 048
     Dates: start: 20141017, end: 20150608

REACTIONS (5)
  - Peripheral swelling [Unknown]
  - Back pain [Unknown]
  - Treatment failure [Unknown]
  - Metastases to spine [Unknown]
  - Bone cancer metastatic [Unknown]

NARRATIVE: CASE EVENT DATE: 20150304
